FAERS Safety Report 12951105 (Version 3)
Quarter: 2017Q1

REPORT INFORMATION
  Report Type: Spontaneous
  Country: JP (occurrence: JP)
  Receive Date: 20161117
  Receipt Date: 20170119
  Transmission Date: 20170428
  Serious: Yes (Other)
  Sender: FDA-Public Use
  Company Number: JP-PFIZER INC-2016531151

PATIENT
  Age: 51 Year
  Sex: Female

DRUGS (4)
  1. RHEUMATREX [Suspect]
     Active Substance: METHOTREXATE SODIUM
     Indication: POLYARTHRITIS
     Dosage: 6 MG, WEEKLY
     Route: 048
     Dates: start: 20140215, end: 20160228
  2. RHEUMATREX [Suspect]
     Active Substance: METHOTREXATE SODIUM
     Dosage: 8 MG, WEEKLY
     Route: 048
     Dates: start: 20160229, end: 20160403
  3. RHEUMATREX [Suspect]
     Active Substance: METHOTREXATE SODIUM
     Dosage: 6 MG, WEEKLY
     Route: 048
     Dates: start: 20160404
  4. RIMATIL [Suspect]
     Active Substance: BUCILLAMINE
     Indication: POLYARTHRITIS
     Dosage: 100 MG, 2X/DAY
     Route: 048
     Dates: start: 20160404

REACTIONS (2)
  - Therapeutic response decreased [Unknown]
  - Immunodeficiency [Unknown]

NARRATIVE: CASE EVENT DATE: 20161109
